FAERS Safety Report 8055348 (Version 2)
Quarter: 2013Q2

REPORT INFORMATION
  Report Type: Spontaneous
  Country: JP (occurrence: JP)
  Receive Date: 20110726
  Receipt Date: 20130517
  Transmission Date: 20140414
  Serious: Yes (Hospitalization)
  Sender: FDA-Public Use
  Company Number: JP-SANOFI-AVENTIS-2011SA046368

PATIENT
  Age: 66 Year
  Sex: Male

DRUGS (2)
  1. POLYSTYRENE SULFONATE SODIUM [Suspect]
     Indication: RENAL FAILURE CHRONIC
     Route: 048
  2. ALL OTHER THERAPEUTIC PRODUCTS [Concomitant]
     Indication: RENAL FAILURE CHRONIC
     Route: 048

REACTIONS (9)
  - Myopathy [Recovering/Resolving]
  - Hypokalaemia [Recovering/Resolving]
  - Constipation [Recovering/Resolving]
  - Abdominal pain lower [Recovering/Resolving]
  - Blood creatine phosphokinase increased [Recovering/Resolving]
  - Muscular weakness [Recovering/Resolving]
  - Intestinal ischaemia [None]
  - Medication residue present [None]
  - White blood cell count increased [None]
